FAERS Safety Report 6456457-8 (Version None)
Quarter: 2009Q4

REPORT INFORMATION
  Report Type: 
  Country: None (occurrence: None)
  Receive Date: 20091125
  Receipt Date: 20091117
  Transmission Date: 20100525
  Serious: Yes (Hospitalization, Other)
  Sender: FDA-Public Use
  Company Number: DE-AMGEN-US375405

PATIENT
  Age: 65 Year
  Sex: Female

DRUGS (2)
  1. ENBREL [Suspect]
     Indication: PSORIATIC ARTHROPATHY
     Route: 058
     Dates: start: 20090423, end: 20091115
  2. ARCOXIA [Concomitant]

REACTIONS (3)
  - BLOOD CALCIUM INCREASED [None]
  - MALAISE [None]
  - NEPHROLITHIASIS [None]
